FAERS Safety Report 24589615 (Version 3)
Quarter: 2024Q4

REPORT INFORMATION
  Report Type: Spontaneous
  Country: US (occurrence: US)
  Receive Date: 20241107
  Receipt Date: 20241217
  Transmission Date: 20250115
  Serious: Yes (Other)
  Sender: PFIZER
  Company Number: US-PFIZER INC-PV202400143500

PATIENT
  Age: 72 Year
  Sex: Female
  Weight: 51.528 kg

DRUGS (2)
  1. IBRANCE [Suspect]
     Active Substance: PALBOCICLIB
     Indication: Breast cancer metastatic
     Dosage: UNK
     Dates: start: 20161222
  2. IBRANCE [Suspect]
     Active Substance: PALBOCICLIB
     Dosage: 100 MG, DAILY FOR 2 WEEKS AND THEN 2 WEEKS OFF AND THEN REPEAT
     Route: 048
     Dates: start: 20240130

REACTIONS (17)
  - Leukopenia [Unknown]
  - Anaemia [Unknown]
  - Weight decreased [Unknown]
  - Carbohydrate antigen 27.29 increased [Unknown]
  - Blood lactate dehydrogenase decreased [Unknown]
  - Blood bilirubin decreased [Unknown]
  - White blood cell count decreased [Unknown]
  - Red blood cell count decreased [Unknown]
  - Haemoglobin decreased [Unknown]
  - Haematocrit decreased [Unknown]
  - Mean cell volume increased [Unknown]
  - Mean cell haemoglobin increased [Unknown]
  - Mean cell haemoglobin concentration decreased [Unknown]
  - Platelet count decreased [Unknown]
  - Eosinophil percentage increased [Unknown]
  - Basophil percentage increased [Unknown]
  - Lymphocyte count decreased [Unknown]
